FAERS Safety Report 21606219 (Version 2)
Quarter: 2023Q1

REPORT INFORMATION
  Report Type: Spontaneous
  Country: PT (occurrence: PT)
  Receive Date: 20221117
  Receipt Date: 20230103
  Transmission Date: 20230418
  Serious: Yes (Hospitalization, Other)
  Sender: FDA-Public Use
  Company Number: PT-AstraZeneca-2022A360414

PATIENT
  Age: 74 Year
  Sex: Male

DRUGS (2)
  1. OMEPRAZOLE [Suspect]
     Active Substance: OMEPRAZOLE
     Indication: Gastritis
     Dosage: UNK
     Route: 048
  2. UNSPECIFIED INGREDIENT [Suspect]
     Active Substance: UNSPECIFIED INGREDIENT
     Indication: Type 2 diabetes mellitus
     Dosage: UNK
     Route: 065

REACTIONS (10)
  - Hypomagnesaemia [Recovered/Resolved]
  - Hallucination [Recovered/Resolved]
  - Gait disturbance [Recovered/Resolved]
  - Hallucination, visual [Recovered/Resolved]
  - Myoclonus [Recovered/Resolved]
  - Memory impairment [Recovered/Resolved]
  - Confusional state [Recovered/Resolved]
  - Balance disorder [Recovered/Resolved]
  - Parasomnia [Recovered/Resolved]
  - Dyskinesia [Recovered/Resolved]
